FAERS Safety Report 22030199 (Version 4)
Quarter: 2023Q2

REPORT INFORMATION
  Report Type: Spontaneous
  Country: US (occurrence: US)
  Receive Date: 20230223
  Receipt Date: 20230425
  Transmission Date: 20230722
  Serious: Yes (Hospitalization, Other)
  Sender: FDA-Public Use
  Company Number: US-009507513-2302USA006419

PATIENT
  Age: 70 Year
  Sex: Male

DRUGS (2)
  1. KEYTRUDA [Suspect]
     Active Substance: PEMBROLIZUMAB
     Indication: Malignant melanoma
     Dosage: 200 MILLIGRAM, Q3W
     Route: 042
     Dates: start: 20221206, end: 20230117
  2. ONC-392 [Suspect]
     Active Substance: ONC-392
     Indication: Malignant melanoma
     Dosage: 6 MILLIGRAM/KILOGRAM, Q3W
     Route: 042
     Dates: start: 20221206, end: 20230117

REACTIONS (1)
  - Cytokine release syndrome [Recovered/Resolved]

NARRATIVE: CASE EVENT DATE: 20221230
